FAERS Safety Report 11522838 (Version 3)
Quarter: 2016Q1

REPORT INFORMATION
  Report Type: Report from Study
  Country: JP (occurrence: JP)
  Receive Date: 20150918
  Receipt Date: 20160106
  Transmission Date: 20160525
  Serious: Yes (Death, Hospitalization)
  Sender: FDA-Public Use
  Company Number: JP-WARNER CHILCOTT 2015-001898

PATIENT
  Age: 87 Year
  Sex: Female

DRUGS (7)
  1. LINAGLIPTIN [Concomitant]
     Active Substance: LINAGLIPTIN
     Dates: start: 20140319
  2. ACTONEL [Suspect]
     Active Substance: RISEDRONATE SODIUM
     Indication: OSTEOPOROSIS
     Route: 048
     Dates: start: 20140514, end: 20150518
  3. CALCIUM LACTATE [Concomitant]
     Active Substance: CALCIUM LACTATE
     Dates: start: 20140401
  4. MOHRUS [Concomitant]
     Active Substance: KETOPROFEN
     Dates: start: 20140121
  5. ADANT [Concomitant]
     Dates: start: 20131022, end: 20150810
  6. BAYASPIRIN [Concomitant]
     Active Substance: ASPIRIN
     Dates: start: 20030403
  7. NORVASC [Concomitant]
     Active Substance: AMLODIPINE BESYLATE
     Dates: start: 20030403

REACTIONS (16)
  - Malaise [None]
  - Cardiomegaly [None]
  - Decreased appetite [None]
  - Cough [None]
  - Aspartate aminotransferase increased [None]
  - Blood fibrinogen increased [None]
  - Muscle spasms [None]
  - Fibrin D dimer increased [None]
  - Prothrombin time prolonged [None]
  - Dyspnoea [None]
  - Pyrexia [None]
  - Arteriosclerosis coronary artery [None]
  - Bronchiectasis [None]
  - Blood lactate dehydrogenase increased [None]
  - Interstitial lung disease [None]
  - Blood albumin decreased [None]
